FAERS Safety Report 5819512-9 (Version None)
Quarter: 2008Q3

REPORT INFORMATION
  Report Type: 
  Country: None (occurrence: None)
  Receive Date: 20080718
  Receipt Date: 20080708
  Transmission Date: 20090109
  Serious: Yes (Hospitalization)
  Sender: FDA-Public Use
  Company Number: 002061

PATIENT
  Age: 16 Year
  Sex: Male

DRUGS (10)
  1. BUSULFEX [Suspect]
     Indication: STEM CELL TRANSPLANT
     Dosage: 27 ML, INTRAVENOUS; 36 ML, DAILY DOSE; INTRAVENOUS; 9 ML, DAILY DOSE; INTRAVENOUS;
     Route: 042
     Dates: start: 20080229, end: 20080229
  2. BUSULFEX [Suspect]
     Indication: STEM CELL TRANSPLANT
     Dosage: 27 ML, INTRAVENOUS; 36 ML, DAILY DOSE; INTRAVENOUS; 9 ML, DAILY DOSE; INTRAVENOUS;
     Route: 042
     Dates: start: 20080301, end: 20080303
  3. BUSULFEX [Suspect]
     Indication: STEM CELL TRANSPLANT
     Dosage: 27 ML, INTRAVENOUS; 36 ML, DAILY DOSE; INTRAVENOUS; 9 ML, DAILY DOSE; INTRAVENOUS;
     Route: 042
     Dates: start: 20080304, end: 20080304
  4. BUSULFEX [Suspect]
     Indication: STEM CELL TRANSPLANT
     Dosage: 27 ML, INTRAVENOUS; 36 ML, DAILY DOSE; INTRAVENOUS; 9 ML, DAILY DOSE; INTRAVENOUS;
     Route: 042
     Dates: start: 20080304, end: 20080304
  5. FLUDARABINE PHOSPHATE [Concomitant]
  6. PHENYTOIN [Concomitant]
  7. MELPHALAN (MELPHALAN) [Concomitant]
  8. METHOTREXATE [Concomitant]
  9. CYCLOSPORINE [Concomitant]
  10. HYDROCORTISONE SODIUM SUCCINATE [Concomitant]

REACTIONS (14)
  - ALOPECIA [None]
  - BLOOD BILIRUBIN INCREASED [None]
  - BLOOD CREATININE INCREASED [None]
  - BLOOD POTASSIUM INCREASED [None]
  - CLOSTRIDIAL INFECTION [None]
  - CYTOMEGALOVIRUS INFECTION [None]
  - DIARRHOEA [None]
  - GASTROOESOPHAGEAL REFLUX DISEASE [None]
  - HAEMORRHOIDS [None]
  - INSOMNIA [None]
  - PLATELET COUNT DECREASED [None]
  - RED BLOOD CELL COUNT DECREASED [None]
  - STENOTROPHOMONAS INFECTION [None]
  - STOMATITIS [None]
